FAERS Safety Report 5503685-1 (Version None)
Quarter: 2007Q4

REPORT INFORMATION
  Report Type: 
  Country: None (occurrence: None)
  Receive Date: 20071101
  Receipt Date: 20071022
  Transmission Date: 20080405
  Serious: Yes (Other)
  Sender: FDA-Public Use
  Company Number: PHNU2006DE03763

PATIENT
  Sex: Female

DRUGS (4)
  1. LEPONEX [Suspect]
     Indication: SCHIZOAFFECTIVE DISORDER
     Dosage: 125 MG/DAY
     Route: 048
     Dates: start: 20051001
  2. LEPONEX [Suspect]
     Dosage: 100 MG/DAY
     Route: 048
  3. QUILONUM [Concomitant]
     Indication: SCHIZOAFFECTIVE DISORDER
     Dosage: UNKNOWN
     Route: 048
  4. TREVILOR [Concomitant]
     Indication: SCHIZOAFFECTIVE DISORDER
     Dosage: 150 MG/DAY
     Route: 048

REACTIONS (4)
  - CAESAREAN SECTION [None]
  - DRUG EXPOSURE DURING PREGNANCY [None]
  - NORMAL NEWBORN [None]
  - PREGNANCY [None]
